FAERS Safety Report 11167040 (Version 1)
Quarter: 2015Q2

REPORT INFORMATION
  Report Type: Spontaneous
  Country: IT (occurrence: IT)
  Receive Date: 20150605
  Receipt Date: 20150605
  Transmission Date: 20150821
  Serious: Yes (Other)
  Sender: FDA-Public Use
  Company Number: IT-TEVA-567373ACC

PATIENT
  Age: 77 Year
  Sex: Female

DRUGS (1)
  1. TEVAGRASTIM - TEVA GMBH [Suspect]
     Active Substance: FILGRASTIM
     Indication: NEUTROPENIA
     Dosage: 30 IU (INTERNATIONAL UNIT) DAILY; 30 LU DAILY
     Route: 058
     Dates: start: 20150328, end: 20150418

REACTIONS (4)
  - Oedema [Recovering/Resolving]
  - Flushing [Recovering/Resolving]
  - Pruritus [Recovering/Resolving]
  - Hypersensitivity [Recovering/Resolving]

NARRATIVE: CASE EVENT DATE: 20150418
